FAERS Safety Report 4824846-0 (Version None)
Quarter: 2005Q4

REPORT INFORMATION
  Report Type: 
  Country: None (occurrence: None)
  Receive Date: 20051012
  Receipt Date: 20050624
  Transmission Date: 20060501
  Serious: No
  Sender: FDA-Public Use
  Company Number: 2005S1000147

PATIENT
  Age: 45 Year
  Weight: 81 kg

DRUGS (2)
  1. CUBICIN [Suspect]
     Indication: POSTOPERATIVE WOUND INFECTION
     Dosage: 350 MG; Q24H; IV
     Route: 042
     Dates: start: 20050608
  2. SYNTHROID [Concomitant]

REACTIONS (1)
  - FATIGUE [None]
